FAERS Safety Report 22612125 (Version 1)
Quarter: 2023Q2

REPORT INFORMATION
  Report Type: Spontaneous
  Country: US (occurrence: US)
  Receive Date: 20230617
  Receipt Date: 20230617
  Transmission Date: 20230722
  Serious: No
  Sender: FDA-Public Use
  Company Number: US-AMGEN-USASP2023103902

PATIENT
  Age: 73 Year
  Sex: Female

DRUGS (1)
  1. PROLIA [Suspect]
     Active Substance: DENOSUMAB
     Indication: Osteopenia
     Dosage: UNK, Q6MO
     Route: 065
     Dates: start: 20221206

REACTIONS (3)
  - Peripheral swelling [Unknown]
  - Blood cholesterol increased [Unknown]
  - Arthralgia [Unknown]
